FAERS Safety Report 23970602 (Version 1)
Quarter: 2024Q2

REPORT INFORMATION
  Report Type: Spontaneous
  Country: US (occurrence: US)
  Receive Date: 20240613
  Receipt Date: 20240613
  Transmission Date: 20240715
  Serious: No
  Sender: FDA-Public Use
  Company Number: US-BRISTOL-MYERS SQUIBB COMPANY-2024-089161

PATIENT
  Age: 90 Year
  Sex: Female

DRUGS (2)
  1. NIVOLUMAB [Suspect]
     Active Substance: NIVOLUMAB
     Indication: Lung adenocarcinoma stage IV
     Dosage: DOSE : 360 MG;     FREQ : SEE EMAIL/AE NARRATIVE
     Route: 042
  2. IPILIMUMAB [Suspect]
     Active Substance: IPILIMUMAB
     Indication: Lung adenocarcinoma stage IV
     Route: 042
     Dates: start: 20240325

REACTIONS (4)
  - Dyspnoea [Unknown]
  - Confusional state [Unknown]
  - Disorientation [Unknown]
  - Blood pressure increased [Recovered/Resolved]
